FAERS Safety Report 7258392-4 (Version None)
Quarter: 2011Q1

REPORT INFORMATION
  Report Type: 
  Country: None (occurrence: None)
  Receive Date: 20110129
  Receipt Date: 20100708
  Transmission Date: 20110831
  Serious: No
  Sender: FDA-Public Use
  Company Number: US-ABBOTT-10P-163-0656321-00

PATIENT
  Age: 66 Year
  Sex: Female

DRUGS (17)
  1. CENTRUM SILVER WOMENS VITAMIN [Concomitant]
     Indication: PRODUCT USED FOR UNKNOWN INDICATION
  2. FOLIC ACID [Concomitant]
     Indication: PRODUCT USED FOR UNKNOWN INDICATION
  3. SINGULAIR [Concomitant]
     Indication: HYPERSENSITIVITY
     Dosage: AT BEDTIME
  4. WELLBUTRIN [Concomitant]
     Indication: DEPRESSION
     Dosage: AT BEDTIME
  5. PREVACID [Concomitant]
     Indication: GASTROOESOPHAGEAL REFLUX DISEASE
  6. VITAMIN E [Concomitant]
     Indication: PRODUCT USED FOR UNKNOWN INDICATION
  7. ENDOCORT [Concomitant]
     Indication: CROHN'S DISEASE
  8. AXERT [Concomitant]
     Indication: MIGRAINE
  9. HUMIRA [Suspect]
     Indication: CROHN'S DISEASE
     Dates: start: 20100430
  10. LUTEIN [Concomitant]
     Indication: EYE DISORDER
  11. ASCORBIC ACID [Concomitant]
     Indication: PRODUCT USED FOR UNKNOWN INDICATION
  12. CRANBERRY [Concomitant]
     Indication: PRODUCT USED FOR UNKNOWN INDICATION
  13. VITAMIN B1 TAB [Concomitant]
     Indication: PRODUCT USED FOR UNKNOWN INDICATION
  14. VITAMIN B-12 [Concomitant]
     Indication: PRODUCT USED FOR UNKNOWN INDICATION
  15. CALTRATE + VITAMIN D [Concomitant]
     Indication: PRODUCT USED FOR UNKNOWN INDICATION
  16. VITAMIN B [Concomitant]
     Indication: PRODUCT USED FOR UNKNOWN INDICATION
  17. AXERT [Concomitant]
     Indication: PAIN

REACTIONS (2)
  - ABDOMINAL DISTENSION [None]
  - FATIGUE [None]
